FAERS Safety Report 18683637 (Version 9)
Quarter: 2021Q3

REPORT INFORMATION
  Report Type: Spontaneous
  Country: US (occurrence: US)
  Receive Date: 20201230
  Receipt Date: 20210813
  Transmission Date: 20211014
  Serious: Yes (Hospitalization, Other)
  Sender: FDA-Public Use
  Company Number: US-ALXN-A202019241

PATIENT
  Sex: Female

DRUGS (3)
  1. SOLIRIS [Suspect]
     Active Substance: ECULIZUMAB
     Dosage: UNK
     Route: 042
     Dates: start: 20181001, end: 202012
  2. SOLIRIS [Suspect]
     Active Substance: ECULIZUMAB
     Dosage: UNK, EVERY OTHER WEEK
     Route: 042
     Dates: start: 20210401
  3. SOLIRIS [Suspect]
     Active Substance: ECULIZUMAB
     Indication: MYASTHENIA GRAVIS
     Dosage: UNK
     Route: 042
     Dates: start: 201701

REACTIONS (15)
  - Fatigue [Recovering/Resolving]
  - Sepsis [Recovering/Resolving]
  - Infection [Unknown]
  - Spinal cord injury [Recovering/Resolving]
  - Intervertebral disc protrusion [Unknown]
  - Skin ulcer [Unknown]
  - Upper limb fracture [Unknown]
  - Eyelid ptosis [Unknown]
  - Back pain [Unknown]
  - Fall [Unknown]
  - Dyspnoea [Recovering/Resolving]
  - Anaemia [Not Recovered/Not Resolved]
  - Spinal cord infection [Recovering/Resolving]
  - Osteomyelitis [Recovering/Resolving]
  - Spinal cord abscess [Recovering/Resolving]
